FAERS Safety Report 19093346 (Version 2)
Quarter: 2021Q2

REPORT INFORMATION
  Report Type: Report from Study
  Country: US (occurrence: US)
  Receive Date: 20210405
  Receipt Date: 20210430
  Transmission Date: 20210717
  Serious: Yes (Other)
  Sender: FDA-Public Use
  Company Number: US-PFIZER INC-2021338780

PATIENT
  Age: 73 Year
  Sex: Female

DRUGS (1)
  1. IBRANCE [Suspect]
     Active Substance: PALBOCICLIB
     Indication: BREAST CANCER FEMALE
     Dosage: 75 MG, CYCLIC (FOR 7 DAYS, THEN 7 DAYS OFF)
     Route: 048
     Dates: start: 20210306, end: 20210322

REACTIONS (9)
  - Asthenia [Recovered/Resolved]
  - Somnolence [Unknown]
  - Abnormal dreams [Recovered/Resolved]
  - Dehydration [Unknown]
  - Fatigue [Unknown]
  - Cold sweat [Recovered/Resolved]
  - Asthenia [Unknown]
  - Off label use [Unknown]
  - Hallucination [Recovered/Resolved]

NARRATIVE: CASE EVENT DATE: 2021
